FAERS Safety Report 4719224-9 (Version None)
Quarter: 2005Q3

REPORT INFORMATION
  Report Type: 
  Country: None (occurrence: None)
  Receive Date: 20050718
  Receipt Date: 20050718
  Transmission Date: 20060218
  Serious: Yes (Other)
  Sender: FDA-Public Use
  Company Number: None

PATIENT
  Age: 41 Year
  Sex: Male
  Weight: 83.9154 kg

DRUGS (5)
  1. BUPROPION 150MG WATSON PHARMACEUTICALS [Suspect]
     Indication: BIPOLAR DISORDER
     Dosage: 150MG BID ORAL
     Route: 048
     Dates: start: 20050212, end: 20050427
  2. LIPITOR [Concomitant]
  3. AVANDIA [Concomitant]
  4. LISINOPRIL [Concomitant]
  5. DEPAKOTE [Concomitant]

REACTIONS (2)
  - DEPRESSION [None]
  - PHARMACEUTICAL PRODUCT COMPLAINT [None]
